FAERS Safety Report 24293796 (Version 1)
Quarter: 2024Q3

REPORT INFORMATION
  Report Type: Spontaneous
  Country: US (occurrence: None)
  Receive Date: 20240906
  Receipt Date: 20240906
  Transmission Date: 20241016
  Serious: No
  Sender: DOMPE FARMACEUTICI
  Company Number: US-FARMAPROD-202402-0674

PATIENT
  Sex: Female
  Weight: 79.38 kg

DRUGS (21)
  1. OXERVATE [Suspect]
     Active Substance: CENEGERMIN-BKBJ
     Indication: Neurotrophic keratopathy
     Route: 047
     Dates: start: 20240212, end: 20240408
  2. OXERVATE [Suspect]
     Active Substance: CENEGERMIN-BKBJ
  3. EYLEA [Suspect]
     Active Substance: AFLIBERCEPT
     Indication: Product used for unknown indication
     Dosage: 2 MG / 0.05 ML VIAL
  4. MOXIFLOXACIN [Concomitant]
     Active Substance: MOXIFLOXACIN
  5. SOOTHE LUBRICANT [Concomitant]
  6. LUTEIN [Concomitant]
     Active Substance: LUTEIN
  7. VITAMINS [Concomitant]
     Active Substance: VITAMINS
  8. MAGNESIUM [Concomitant]
     Active Substance: MAGNESIUM
  9. IRON [Concomitant]
     Active Substance: IRON
     Dosage: 256(28) MG
  10. FLUOXETINE HYDROCHLORIDE [Concomitant]
     Active Substance: FLUOXETINE HYDROCHLORIDE
  11. LEVOTHYROXINE SODIUM [Concomitant]
     Active Substance: LEVOTHYROXINE SODIUM
  12. GENTEAL TEARS [Concomitant]
     Active Substance: DEXTRAN 70\HYPROMELLOSE 2910 (4000 MPA.S)
     Dosage: 0.1%-0.3%
  13. PREDNISOLONE-BROMFENAC [Concomitant]
  14. COMBIGAN [Concomitant]
     Active Substance: BRIMONIDINE TARTRATE\TIMOLOL MALEATE
     Dosage: 0.2%-0.5%
  15. COLLAGEN [Concomitant]
     Active Substance: COLLAGEN
     Dosage: 125-740MG
  16. OMEPRAZOLE [Concomitant]
     Active Substance: OMEPRAZOLE
  17. VITAMIN D3 [Concomitant]
     Active Substance: CHOLECALCIFEROL
  18. STOOL SOFTENER-LAXATIVE [Concomitant]
  19. TYLENOL [Concomitant]
     Active Substance: ACETAMINOPHEN
  20. ATORVASTATIN CALCIUM [Concomitant]
     Active Substance: ATORVASTATIN CALCIUM
  21. DOXYCYCLINE HYCLATE [Concomitant]
     Active Substance: DOXYCYCLINE HYCLATE

REACTIONS (6)
  - Eyelid pain [Unknown]
  - Ocular discomfort [Unknown]
  - Periorbital pain [Unknown]
  - Eye irritation [Recovered/Resolved]
  - Ocular discomfort [Recovered/Resolved]
  - Eye pain [Unknown]
